FAERS Safety Report 5454404-9 (Version None)
Quarter: 2007Q3

REPORT INFORMATION
  Report Type: 
  Country: None (occurrence: None)
  Receive Date: 20070917
  Receipt Date: 20060806
  Transmission Date: 20080115
  Serious: No
  Sender: FDA-Public Use
  Company Number: US-ASTRAZENECA-2006UW16296

PATIENT
  Age: 16 Year
  Sex: Female

DRUGS (4)
  1. SEROQUEL [Suspect]
     Route: 048
  2. LAMICTAL [Concomitant]
  3. KLONOPIN [Concomitant]
  4. ADDERALL [Concomitant]

REACTIONS (1)
  - FALL [None]
